FAERS Safety Report 25494557 (Version 1)
Quarter: 2025Q2

REPORT INFORMATION
  Report Type: Report from Study
  Country: ES (occurrence: ES)
  Receive Date: 20250630
  Receipt Date: 20250630
  Transmission Date: 20250717
  Serious: Yes (Hospitalization, Other)
  Sender: MYLAN
  Company Number: None

PATIENT
  Age: 31 Year
  Sex: Male

DRUGS (16)
  1. ACETAMINOPHEN [Suspect]
     Active Substance: ACETAMINOPHEN
     Indication: Product used for unknown indication
     Dosage: 20 MILLIGRAM, QD (DOSE UNIT FREQUENCY: 20 MG-MILLIGRAMS)
     Dates: start: 20150223, end: 20150223
  2. ACETAMINOPHEN [Suspect]
     Active Substance: ACETAMINOPHEN
     Dosage: 20 MILLIGRAM, QD (DOSE UNIT FREQUENCY: 20 MG-MILLIGRAMS)
     Route: 048
     Dates: start: 20150223, end: 20150223
  3. ACETAMINOPHEN [Suspect]
     Active Substance: ACETAMINOPHEN
     Dosage: 20 MILLIGRAM, QD (DOSE UNIT FREQUENCY: 20 MG-MILLIGRAMS)
     Route: 048
     Dates: start: 20150223, end: 20150223
  4. ACETAMINOPHEN [Suspect]
     Active Substance: ACETAMINOPHEN
     Dosage: 20 MILLIGRAM, QD (DOSE UNIT FREQUENCY: 20 MG-MILLIGRAMS)
     Dates: start: 20150223, end: 20150223
  5. FLUOXETINE [Suspect]
     Active Substance: FLUOXETINE HYDROCHLORIDE
     Indication: Depression
     Dosage: 400 MILLIGRAM, QD (DOSE UNIT FREQUENCY: 400 MG-MILLIGRAMS)
     Dates: start: 20150223, end: 20150223
  6. FLUOXETINE [Suspect]
     Active Substance: FLUOXETINE HYDROCHLORIDE
     Dosage: 400 MILLIGRAM, QD (DOSE UNIT FREQUENCY: 400 MG-MILLIGRAMS)
     Dates: start: 20150223, end: 20150223
  7. FLUOXETINE [Suspect]
     Active Substance: FLUOXETINE HYDROCHLORIDE
     Dosage: 400 MILLIGRAM, QD (DOSE UNIT FREQUENCY: 400 MG-MILLIGRAMS)
     Route: 048
     Dates: start: 20150223, end: 20150223
  8. FLUOXETINE [Suspect]
     Active Substance: FLUOXETINE HYDROCHLORIDE
     Dosage: 400 MILLIGRAM, QD (DOSE UNIT FREQUENCY: 400 MG-MILLIGRAMS)
     Route: 048
     Dates: start: 20150223, end: 20150223
  9. FLUOXETINE [Suspect]
     Active Substance: FLUOXETINE HYDROCHLORIDE
     Dosage: 20 MILLIGRAM, QD (DOSE UNIT FREQUENCY: 20 MG-MILLIGRAMS)
     Dates: start: 20150223, end: 20150223
  10. FLUOXETINE [Suspect]
     Active Substance: FLUOXETINE HYDROCHLORIDE
     Dosage: 20 MILLIGRAM, QD (DOSE UNIT FREQUENCY: 20 MG-MILLIGRAMS)
     Dates: start: 20150223, end: 20150223
  11. FLUOXETINE [Suspect]
     Active Substance: FLUOXETINE HYDROCHLORIDE
     Dosage: 20 MILLIGRAM, QD (DOSE UNIT FREQUENCY: 20 MG-MILLIGRAMS)
     Route: 048
     Dates: start: 20150223, end: 20150223
  12. FLUOXETINE [Suspect]
     Active Substance: FLUOXETINE HYDROCHLORIDE
     Dosage: 20 MILLIGRAM, QD (DOSE UNIT FREQUENCY: 20 MG-MILLIGRAMS)
     Route: 048
     Dates: start: 20150223, end: 20150223
  13. GABAPENTIN [Suspect]
     Active Substance: GABAPENTIN
     Indication: Product used for unknown indication
     Dosage: 4.5 MILLIGRAM, QD (DOSE UNIT FREQUENCY: 4.5 MG-MILLIGRAMS)
     Dates: start: 20150223, end: 20150223
  14. GABAPENTIN [Suspect]
     Active Substance: GABAPENTIN
     Dosage: 4.5 MILLIGRAM, QD (DOSE UNIT FREQUENCY: 4.5 MG-MILLIGRAMS)
     Route: 048
     Dates: start: 20150223, end: 20150223
  15. GABAPENTIN [Suspect]
     Active Substance: GABAPENTIN
     Dosage: 4.5 MILLIGRAM, QD (DOSE UNIT FREQUENCY: 4.5 MG-MILLIGRAMS)
     Route: 048
     Dates: start: 20150223, end: 20150223
  16. GABAPENTIN [Suspect]
     Active Substance: GABAPENTIN
     Dosage: 4.5 MILLIGRAM, QD (DOSE UNIT FREQUENCY: 4.5 MG-MILLIGRAMS)
     Dates: start: 20150223, end: 20150223

REACTIONS (3)
  - Suicide attempt [Unknown]
  - Hepatitis acute [Recovering/Resolving]
  - Intentional overdose [Recovering/Resolving]

NARRATIVE: CASE EVENT DATE: 20150224
